FAERS Safety Report 17532930 (Version 1)
Quarter: 2020Q1

REPORT INFORMATION
  Report Type: Spontaneous
  Country: CA (occurrence: CA)
  Receive Date: 20200312
  Receipt Date: 20200312
  Transmission Date: 20200409
  Serious: Yes (Disabling)
  Sender: FDA-Public Use
  Company Number: NVSC2020CA065896

PATIENT
  Age: 41 Year
  Sex: Male
  Weight: 81 kg

DRUGS (6)
  1. TAFINLAR [Interacting]
     Active Substance: DABRAFENIB MESYLATE
     Indication: SKIN NEOPLASM EXCISION
     Dosage: 75 MG, BID
     Route: 065
  2. MEKINIST [Suspect]
     Active Substance: TRAMETINIB DIMETHYL SULFOXIDE
     Indication: SKIN NEOPLASM EXCISION
     Dosage: 1 MG, QD
     Route: 048
  3. CITALOPRAM HYDROBROMIDE. [Interacting]
     Active Substance: CITALOPRAM HYDROBROMIDE
     Indication: DEPRESSION
     Dosage: 20 MG, QD (3 WEEKS)
     Route: 048
  4. MEKINIST [Interacting]
     Active Substance: TRAMETINIB DIMETHYL SULFOXIDE
     Dosage: 1 MG, QD
     Route: 048
  5. TAFINLAR [Interacting]
     Active Substance: DABRAFENIB MESYLATE
     Dosage: 75 MG, BID
     Route: 048
  6. CITALOPRAM HYDROBROMIDE. [Interacting]
     Active Substance: CITALOPRAM HYDROBROMIDE
     Dosage: 10 MG, QD (1 WEEK)
     Route: 048

REACTIONS (4)
  - Headache [Unknown]
  - Drug interaction [Recovering/Resolving]
  - Erythema nodosum [Unknown]
  - Peripheral swelling [Unknown]
